FAERS Safety Report 15712414 (Version 1)
Quarter: 2018Q4

REPORT INFORMATION
  Report Type: Spontaneous
  Country: US (occurrence: US)
  Receive Date: 20181212
  Receipt Date: 20181212
  Transmission Date: 20190205
  Serious: No
  Sender: FDA-Public Use
  Company Number: US-PFIZER INC-2018510627

PATIENT
  Age: 78 Year
  Sex: Male

DRUGS (1)
  1. GENOTROPIN MQ [Suspect]
     Active Substance: SOMATROPIN
     Dosage: 0.6 MG, 6 DAYS A WEEK

REACTIONS (8)
  - Blood testosterone increased [Unknown]
  - Glycosylated haemoglobin increased [Unknown]
  - Blood glucose increased [Unknown]
  - Prostatic specific antigen decreased [Unknown]
  - Vitamin D increased [Unknown]
  - Blood chloride decreased [Unknown]
  - Thyroxine increased [Unknown]
  - Blood sodium decreased [Unknown]
